FAERS Safety Report 5268183-1 (Version None)
Quarter: 2007Q1

REPORT INFORMATION
  Report Type: 
  Country: None (occurrence: None)
  Receive Date: 20070316
  Receipt Date: 20070316
  Transmission Date: 20070707
  Serious: Yes (Hospitalization)
  Sender: FDA-Public Use
  Company Number: None

PATIENT
  Sex: Male
  Weight: 93 kg

DRUGS (12)
  1. XELODA [Suspect]
     Dosage: 1650 MG TWICE A DAY
     Route: 048
     Dates: start: 20070207, end: 20070309
  2. ERLOTINIB [Suspect]
     Indication: PANCREATIC CARCINOMA
     Dosage: 150 MG ONCE A DAY
     Route: 048
     Dates: start: 20070207, end: 20070309
  3. RADIATION [Suspect]
  4. PANCREASE [Concomitant]
  5. PREVACID [Concomitant]
  6. ZOLOFT [Concomitant]
  7. IMODIUM [Concomitant]
  8. ZOFRAN [Concomitant]
  9. LOMOTIL [Concomitant]
  10. TINCTURE OF OPIUM [Concomitant]
  11. BENTYL [Concomitant]
  12. PREVACID [Concomitant]

REACTIONS (5)
  - ASTHENIA [None]
  - DIARRHOEA [None]
  - HEART RATE INCREASED [None]
  - PYREXIA [None]
  - RESPIRATORY RATE INCREASED [None]
